FAERS Safety Report 5015502-7 (Version None)
Quarter: 2006Q2

REPORT INFORMATION
  Report Type: 
  Country: None (occurrence: None)
  Receive Date: 20060601
  Receipt Date: 20060518
  Transmission Date: 20061013
  Serious: Yes (Other)
  Sender: FDA-Public Use
  Company Number: PHBS2006BR07636

PATIENT
  Age: 78 Year
  Sex: Male

DRUGS (5)
  1. ZOMETA [Suspect]
     Indication: MULTIPLE MYELOMA
     Dosage: 4 MG, EVERY 3-4 WEEKS
     Route: 065
     Dates: start: 20050101
  2. VELCADE [Concomitant]
     Indication: MULTIPLE MYELOMA
     Route: 065
     Dates: start: 20060201
  3. DALACIN C [Concomitant]
     Route: 065
     Dates: start: 20060201
  4. EPREX [Concomitant]
     Indication: ANAEMIA
     Dosage: UNK, QW3
     Route: 065
     Dates: start: 20050101
  5. THALIDOMIDE [Concomitant]
     Dosage: UNK, QD
     Route: 065
     Dates: start: 20050101

REACTIONS (5)
  - DEEP VEIN THROMBOSIS [None]
  - OEDEMA [None]
  - OSTEONECROSIS [None]
  - SURGERY [None]
  - TOOTHACHE [None]
